FAERS Safety Report 7510932-3 (Version None)
Quarter: 2011Q2

REPORT INFORMATION
  Report Type: 
  Country: None (occurrence: None)
  Receive Date: 20110531
  Receipt Date: 20090616
  Transmission Date: 20111010
  Serious: No
  Sender: FDA-Public Use
  Company Number: 2009BI018779

PATIENT
  Sex: Female

DRUGS (2)
  1. TYSABRI [Suspect]
     Route: 042
     Dates: start: 20101025, end: 20110412
  2. TYSABRI [Suspect]
     Indication: MULTIPLE SCLEROSIS
     Route: 042
     Dates: start: 20090615, end: 20100401

REACTIONS (12)
  - GENERAL SYMPTOM [None]
  - FATIGUE [None]
  - NAUSEA [None]
  - VIRAL INFECTION [None]
  - HYPOAESTHESIA [None]
  - MALAISE [None]
  - URINARY TRACT INFECTION [None]
  - PAIN IN EXTREMITY [None]
  - BACK PAIN [None]
  - TREMOR [None]
  - PHARYNGEAL ERYTHEMA [None]
  - HEADACHE [None]
